FAERS Safety Report 16769658 (Version 1)
Quarter: 2019Q3

REPORT INFORMATION
  Report Type: Spontaneous
  Country: DE (occurrence: DE)
  Receive Date: 20190903
  Receipt Date: 20190903
  Transmission Date: 20191005
  Serious: Yes (Hospitalization, Other)
  Sender: FDA-Public Use
  Company Number: PHHY2019DE201562

PATIENT
  Age: 11 Week
  Sex: Male

DRUGS (4)
  1. LAMOTRIGINE. [Suspect]
     Active Substance: LAMOTRIGINE
     Indication: EXPOSURE VIA BREAST MILK
     Dosage: UNK
     Route: 064
  2. KEPPRA [Suspect]
     Active Substance: LEVETIRACETAM
     Indication: EXPOSURE VIA BREAST MILK
     Dosage: ALSO THROUGHOUT PREGNANCY. INFANT^S SERUM LEVEL: 1.6 MG/L (RANGE 10-40 MG/L)
     Route: 063
  3. KEPPRA [Suspect]
     Active Substance: LEVETIRACETAM
     Indication: FOETAL EXPOSURE DURING PREGNANCY
     Dosage: UNK
     Route: 064
  4. LAMOTRIGINE. [Suspect]
     Active Substance: LAMOTRIGINE
     Indication: FOETAL EXPOSURE DURING PREGNANCY
     Dosage: ALSO THROUGHOUT PREGNANCY. INFANT^S SERUM LEVEL: 2.2 MG/L (RANGE 3-14)
     Route: 063

REACTIONS (3)
  - Maternal exposure during pregnancy [Unknown]
  - Loss of consciousness [Recovered/Resolved]
  - Exposure via breast milk [Unknown]
